FAERS Safety Report 7281070-2 (Version None)
Quarter: 2011Q1

REPORT INFORMATION
  Report Type: 
  Country: None (occurrence: None)
  Receive Date: 20110208
  Receipt Date: 20110203
  Transmission Date: 20110831
  Serious: Yes (Other)
  Sender: FDA-Public Use
  Company Number: FR-MERCK-1102FRA00030

PATIENT
  Age: 67 Year
  Sex: Male

DRUGS (4)
  1. EMEND [Suspect]
     Route: 048
     Dates: start: 20100707, end: 20100708
  2. DOXORUBICIN HYDROCHLORIDE [Concomitant]
     Route: 065
     Dates: start: 20100706
  3. IFOSFAMIDE [Suspect]
     Route: 042
     Dates: start: 20100706
  4. EMEND [Suspect]
     Indication: PROPHYLAXIS OF NAUSEA AND VOMITING
     Route: 048
     Dates: start: 20100706, end: 20100706

REACTIONS (1)
  - ENCEPHALOPATHY [None]
